FAERS Safety Report 5578645-5 (Version None)
Quarter: 2007Q4

REPORT INFORMATION
  Report Type: 
  Country: None (occurrence: None)
  Receive Date: 20071227
  Receipt Date: 20071227
  Transmission Date: 20080405
  Serious: Yes (Other)
  Sender: FDA-Public Use
  Company Number: None

PATIENT
  Age: 58 Year
  Sex: Male
  Weight: 55.57 kg

DRUGS (2)
  1. RISPERDAL [Suspect]
     Indication: APATHY
     Dosage: QAM AND HS (PO)
     Route: 048
     Dates: start: 20071109, end: 20071114
  2. HALDOL [Suspect]
     Indication: APATHY
     Dosage: HS + Q6H PRN (PO)
     Route: 048
     Dates: start: 20071030, end: 20071118

REACTIONS (4)
  - DROOLING [None]
  - EXTRAPYRAMIDAL DISORDER [None]
  - HYPONATRAEMIA [None]
  - LIPIDS INCREASED [None]
